FAERS Safety Report 6257599-2 (Version None)
Quarter: 2009Q3

REPORT INFORMATION
  Report Type: 
  Country: None (occurrence: None)
  Receive Date: 20090702
  Receipt Date: 20090618
  Transmission Date: 20100115
  Serious: Yes (Hospitalization)
  Sender: FDA-Public Use
  Company Number: 8048186

PATIENT
  Age: 69 Year
  Sex: Male
  Weight: 70 kg

DRUGS (5)
  1. CDP870 [Suspect]
     Indication: RHEUMATOID ARTHRITIS
     Dosage: 400 MG 1/2W SC
     Route: 057
     Dates: start: 20050804, end: 20090603
  2. METHOTREXATE [Concomitant]
  3. METHYLPREDNISOLONE [Concomitant]
  4. ACIDUM FOLICUM [Concomitant]
  5. KALIUM CHLORATUM /00031402/ [Concomitant]

REACTIONS (3)
  - GROIN ABSCESS [None]
  - LIMB TRAUMATIC AMPUTATION [None]
  - SEPSIS [None]
